FAERS Safety Report 8846966 (Version 4)
Quarter: 2013Q3

REPORT INFORMATION
  Report Type: Report from Study
  Country: JP (occurrence: JP)
  Receive Date: 20121018
  Receipt Date: 20130805
  Transmission Date: 20140515
  Serious: Yes (Hospitalization, Other)
  Sender: FDA-Public Use
  Company Number: JP-VERTEX PHARMACEUTICAL INC.-AE-2012-010462

PATIENT
  Age: 59 Year
  Sex: Male

DRUGS (20)
  1. VX-950 (TELAPREVIR) [Suspect]
     Indication: CHRONIC HEPATITIS C
     Dosage: 2250 MG, QD
     Route: 048
     Dates: start: 20120407, end: 20120427
  2. VX-950 (TELAPREVIR) [Suspect]
     Dosage: 1500 MG, QD
     Route: 048
     Dates: start: 20120428, end: 20120623
  3. REBETOL [Suspect]
     Indication: CHRONIC HEPATITIS C
     Dosage: 800 MG, QD
     Route: 048
     Dates: start: 20120407, end: 20120629
  4. REBETOL [Suspect]
     Dosage: 600 MG, QD
     Route: 048
     Dates: start: 20120630, end: 20120704
  5. REBETOL [Suspect]
     Dosage: 400 MG, QD
     Route: 048
     Dates: start: 20120705, end: 20120728
  6. REBETOL [Suspect]
     Dosage: 400 MG, QD
     Route: 048
     Dates: start: 20120804, end: 20120831
  7. REBETOL [Suspect]
     Dosage: 600 MG, QD
     Route: 048
     Dates: start: 20120901, end: 20120928
  8. PEGINTERFERON ALFA-2B [Suspect]
     Indication: CHRONIC HEPATITIS C
     Dosage: 1.5 ?G/KG, QW
     Route: 058
     Dates: start: 20120407, end: 20120622
  9. PEGINTERFERON ALFA-2B [Suspect]
     Dosage: 1.2 ?G/KG, QW
     Route: 058
     Dates: start: 20120623, end: 20120707
  10. PEGINTERFERON ALFA-2B [Suspect]
     Dosage: 1.5 ?G/KG, QW
     Route: 058
     Dates: start: 20120714, end: 20120728
  11. PEGINTERFERON ALFA-2B [Suspect]
     Dosage: 1.5 ?G/KG, QW
     Route: 058
     Dates: start: 20120804
  12. ALDACTONE A [Suspect]
     Indication: ADVERSE EVENT
     Dosage: 25 MG, QD
     Route: 048
     Dates: start: 20120428, end: 20120623
  13. ALLORIN [Concomitant]
     Dosage: 100 MG, QD
     Route: 048
     Dates: end: 20120511
  14. ALLORIN [Concomitant]
     Dosage: 200 MG, QD
     Route: 048
  15. MYSLEE [Concomitant]
     Dosage: 10 MG, QD
     Route: 048
  16. MYSLEE [Concomitant]
     Dosage: 10 MG/QD, AS NEEDED
     Route: 048
     Dates: start: 20120627
  17. MYSLEE [Concomitant]
     Dosage: 10 MG, QD
     Route: 048
  18. ADOAIR [Concomitant]
     Dosage: 250 ?G, QD
     Route: 055
  19. PARIET [Concomitant]
     Dosage: 10 MG, QD
     Route: 048
     Dates: start: 20120702
  20. ALEROFF [Concomitant]
     Dosage: 20 MG, QD
     Route: 048
     Dates: start: 20120627, end: 20120727

REACTIONS (6)
  - Renal disorder [Recovered/Resolved]
  - Urinary tract infection [Recovered/Resolved]
  - Muscular weakness [Recovered/Resolved]
  - Decreased appetite [Recovered/Resolved]
  - Syncope [Recovered/Resolved]
  - Anaemia [Recovered/Resolved]
